FAERS Safety Report 6960637-2 (Version None)
Quarter: 2010Q3

REPORT INFORMATION
  Report Type: 
  Country: None (occurrence: None)
  Receive Date: 20100827
  Receipt Date: 20100811
  Transmission Date: 20110219
  Serious: Yes (Life-Threatening, Hospitalization)
  Sender: FDA-Public Use
  Company Number: BVT-000618

PATIENT
  Age: 64 Year
  Sex: Male

DRUGS (9)
  1. KINERET [Suspect]
     Indication: RHEUMATOID ARTHRITIS
     Dates: start: 20030501, end: 20030501
  2. REMICADE [Suspect]
     Dates: start: 20020829, end: 20030326
  3. METHOTREXATE [Suspect]
     Indication: RHEUMATOID ARTHRITIS
     Dates: start: 20030101, end: 20030301
  4. METHOTREXATE [Suspect]
     Indication: RHEUMATOID ARTHRITIS
     Dates: start: 20040101, end: 20060101
  5. ARAVA [Suspect]
     Indication: RHEUMATOID ARTHRITIS
     Dates: start: 20030101, end: 20030301
  6. HUMIRA [Suspect]
     Indication: RHEUMATOID ARTHRITIS
     Dates: start: 20030601, end: 20030601
  7. ENBREL [Suspect]
     Indication: RHEUMATOID ARTHRITIS
     Dates: start: 20030701, end: 20040101
  8. CYCLOSPORINE [Suspect]
     Indication: RHEUMATOID ARTHRITIS
     Dates: start: 20040101, end: 20060601
  9. MABTHERA (MABTHEA) (NOT SPECIFIED) [Suspect]
     Indication: RHEUMATOID ARTHRITIS
     Dates: start: 20060101

REACTIONS (3)
  - BRONCHITIS [None]
  - EMPHYSEMA [None]
  - NON-SMALL CELL LUNG CANCER [None]
